FAERS Safety Report 13531725 (Version 1)
Quarter: 2017Q2

REPORT INFORMATION
  Report Type: Spontaneous
  Country: US (occurrence: US)
  Receive Date: 20170510
  Receipt Date: 20170510
  Transmission Date: 20170830
  Serious: Yes (Death)
  Sender: FDA-Public Use
  Company Number: None

PATIENT
  Age: 7 Year
  Sex: Female
  Weight: 12.15 kg

DRUGS (6)
  1. PHENOBARBITAL 60MG [Suspect]
     Active Substance: PHENOBARBITAL
     Indication: SEIZURE
     Dosage: ?          QUANTITY:1.5 TABLET(S);?
     Route: 048
     Dates: start: 20170417, end: 20170508
  2. CARAFTE [Concomitant]
  3. CERENIA [Concomitant]
  4. PRILOSEC [Concomitant]
     Active Substance: OMEPRAZOLE MAGNESIUM
  5. BAYTRIL [Concomitant]
  6. CHLORAMPHENICOL [Concomitant]
     Active Substance: CHLORAMPHENICOL

REACTIONS (8)
  - Decreased appetite [None]
  - Lethargy [None]
  - Product label issue [None]
  - Blood urea increased [None]
  - Drug level increased [None]
  - Neurological symptom [None]
  - Product quality issue [None]
  - Blood creatinine increased [None]

NARRATIVE: CASE EVENT DATE: 20170426
